FAERS Safety Report 4341816-X (Version None)
Quarter: 2004Q2

REPORT INFORMATION
  Report Type: 
  Country: None (occurrence: None)
  Receive Date: 20040416
  Receipt Date: 20040407
  Transmission Date: 20050107
  Serious: Yes (Death)
  Sender: FDA-Public Use
  Company Number: 2004UW02477

PATIENT
  Age: 43 Year
  Sex: Male
  Weight: 104.3273 kg

DRUGS (5)
  1. SEROQUEL [Suspect]
  2. NEURONTIN [Suspect]
  3. LEXAPRO [Suspect]
  4. CLONAZEPAM [Suspect]
  5. OXYCONTIN [Concomitant]

REACTIONS (3)
  - COMA [None]
  - CORONARY ARTERY ATHEROSCLEROSIS [None]
  - THERAPEUTIC AGENT TOXICITY [None]
